FAERS Safety Report 19788197 (Version 4)
Quarter: 2021Q4

REPORT INFORMATION
  Report Type: Spontaneous
  Country: US (occurrence: US)
  Receive Date: 20210903
  Receipt Date: 20211028
  Transmission Date: 20220303
  Serious: No
  Sender: FDA-Public Use
  Company Number: US-CELGENE-USA-20210807640

PATIENT
  Age: 72 Year
  Sex: Female
  Weight: 57.3 kg

DRUGS (34)
  1. REVLIMID [Suspect]
     Active Substance: LENALIDOMIDE
     Indication: Plasma cell myeloma
     Dosage: 25 MILLIGRAM
     Route: 048
     Dates: start: 20180523
  2. REVLIMID [Suspect]
     Active Substance: LENALIDOMIDE
     Dosage: 25 MILLIGRAM
     Route: 048
     Dates: start: 20180711
  3. REVLIMID [Suspect]
     Active Substance: LENALIDOMIDE
     Dosage: 10-15 MILLIGRAM
     Route: 048
     Dates: start: 201904
  4. REVLIMID [Suspect]
     Active Substance: LENALIDOMIDE
     Dosage: 15 MILLIGRAM
     Route: 048
     Dates: start: 20200409
  5. REVLIMID [Suspect]
     Active Substance: LENALIDOMIDE
     Dosage: 25 MILLIGRAM
     Route: 048
     Dates: start: 202101
  6. REVLIMID [Suspect]
     Active Substance: LENALIDOMIDE
     Dosage: 25 MILLIGRAM
     Route: 048
     Dates: start: 20210830
  7. ACYCLOVIR [Concomitant]
     Active Substance: ACYCLOVIR
     Indication: Product used for unknown indication
     Dosage: 400 MILLIGRAM
     Route: 048
  8. AMLODIPINE BESYLATE [Concomitant]
     Active Substance: AMLODIPINE BESYLATE
     Indication: Product used for unknown indication
     Dosage: 10 MILLIGRAM
     Route: 048
  9. AMLODIPINE BESYLATE [Concomitant]
     Active Substance: AMLODIPINE BESYLATE
     Dosage: 5 MILLIGRAM
     Route: 048
  10. AMOXICILLIN [Concomitant]
     Active Substance: AMOXICILLIN
     Indication: Product used for unknown indication
     Dosage: 500 MILLIGRAM
     Route: 048
     Dates: start: 202102
  11. AMOXICILLIN [Concomitant]
     Active Substance: AMOXICILLIN
     Dosage: 5 MILLIGRAM
     Route: 048
     Dates: start: 202108
  12. ASPIRIN [Concomitant]
     Active Substance: ASPIRIN
     Indication: Product used for unknown indication
     Dosage: 325 MILLIGRAM
     Route: 048
     Dates: start: 202105
  13. BANOPHEN [Concomitant]
     Active Substance: DIPHENHYDRAMINE HYDROCHLORIDE
     Indication: Product used for unknown indication
     Dosage: 25 MILLIGRAM
     Route: 048
     Dates: start: 202104
  14. CHLORHEXIDINE [Concomitant]
     Active Substance: CHLORHEXIDINE
     Indication: Product used for unknown indication
     Route: 048
     Dates: start: 202104
  15. CYCLOBENZAPRINE [Concomitant]
     Active Substance: CYCLOBENZAPRINE
     Indication: Muscle spasms
     Dosage: 10 MILLIGRAM
     Route: 048
     Dates: start: 202104
  16. DEXAMETHASONE [Concomitant]
     Active Substance: DEXAMETHASONE
     Indication: Product used for unknown indication
     Route: 048
     Dates: start: 202012
  17. DEXAMETHASONE [Concomitant]
     Active Substance: DEXAMETHASONE
     Dosage: 5.7143 MILLIGRAM
     Route: 048
     Dates: start: 202103
  18. DEXAMETHASONE [Concomitant]
     Active Substance: DEXAMETHASONE
     Route: 048
     Dates: start: 202103
  19. DIPHENOXYLATE [Concomitant]
     Active Substance: DIPHENOXYLATE
     Indication: Product used for unknown indication
     Route: 048
     Dates: start: 202108
  20. ESCITALOPRAM [Concomitant]
     Active Substance: ESCITALOPRAM OXALATE
     Indication: Product used for unknown indication
     Dosage: 10 MILLIGRAM
     Route: 048
     Dates: start: 202107
  21. ACETAMINOPHEN\HYDROCODONE [Concomitant]
     Active Substance: ACETAMINOPHEN\HYDROCODONE
     Indication: Pain
     Dosage: 7.5-325
     Route: 048
     Dates: start: 202102
  22. ACETAMINOPHEN\HYDROCODONE [Concomitant]
     Active Substance: ACETAMINOPHEN\HYDROCODONE
     Dosage: 7.5-325
     Route: 048
     Dates: start: 202108
  23. IBUPROFEN [Concomitant]
     Active Substance: IBUPROFEN
     Indication: Pain
     Route: 048
     Dates: start: 202108
  24. MONTELUKAST [Concomitant]
     Active Substance: MONTELUKAST SODIUM
     Indication: Product used for unknown indication
     Route: 048
     Dates: start: 202107
  25. OSELTAMIVIR [Concomitant]
     Active Substance: OSELTAMIVIR
     Indication: Product used for unknown indication
     Dosage: 75 MILLIGRAM
     Route: 048
     Dates: start: 202103
  26. ACETAMINOPHEN [Concomitant]
     Active Substance: ACETAMINOPHEN
     Indication: Analgesic therapy
     Route: 048
     Dates: start: 202101
  27. PREDNISONE [Concomitant]
     Active Substance: PREDNISONE
     Indication: Product used for unknown indication
     Dosage: 20 MILLIGRAM
     Route: 048
     Dates: start: 202104
  28. PROCHLORPERAZINE [Concomitant]
     Active Substance: PROCHLORPERAZINE
     Indication: Product used for unknown indication
     Route: 048
     Dates: start: 202104
  29. SULFAMETHOXAZOLE\TRIMETHOPRIM [Concomitant]
     Active Substance: SULFAMETHOXAZOLE\TRIMETHOPRIM
     Indication: Product used for unknown indication
     Dosage: 800/160 MG
     Route: 048
  30. SULFAMETHOXAZOLE\TRIMETHOPRIM [Concomitant]
     Active Substance: SULFAMETHOXAZOLE\TRIMETHOPRIM
     Dosage: 800/160 MG
     Route: 048
     Dates: start: 202106
  31. TRAZODONE [Concomitant]
     Active Substance: TRAZODONE HYDROCHLORIDE
     Indication: Product used for unknown indication
     Dosage: 50 MILLIGRAM
     Route: 048
  32. CALCIUM\CHOLECALCIFEROL [Concomitant]
     Active Substance: CALCIUM\CHOLECALCIFEROL
     Indication: Product used for unknown indication
     Route: 048
  33. GAS-X [Concomitant]
     Active Substance: DIMETHICONE
     Indication: Product used for unknown indication
     Route: 048
  34. XGEVA [Concomitant]
     Active Substance: DENOSUMAB
     Indication: Product used for unknown indication
     Dosage: 120MG/1.7ML
     Route: 048

REACTIONS (12)
  - Increased tendency to bruise [Recovering/Resolving]
  - Stool chymotrypsin [Unknown]
  - Thyroid function test abnormal [Unknown]
  - Muscle spasms [Unknown]
  - Tooth disorder [Unknown]
  - Diarrhoea [Unknown]
  - Fatigue [Unknown]
  - Anaemia [Unknown]
  - Hypocalcaemia [Unknown]
  - Insomnia [Unknown]
  - Depression [Unknown]
  - Neutropenia [Unknown]

NARRATIVE: CASE EVENT DATE: 20210830
